FAERS Safety Report 25454759 (Version 5)
Quarter: 2025Q3

REPORT INFORMATION
  Report Type: Report from Study
  Country: MY (occurrence: MY)
  Receive Date: 20250619
  Receipt Date: 20250922
  Transmission Date: 20251020
  Serious: Yes (Other)
  Sender: TAKEDA
  Company Number: MY-TAKEDA-2025TUS056127

PATIENT
  Age: 76 Year
  Sex: Male

DRUGS (2)
  1. IXAZOMIB [Suspect]
     Active Substance: IXAZOMIB
     Indication: Plasma cell myeloma
  2. IXAZOMIB [Suspect]
     Active Substance: IXAZOMIB

REACTIONS (2)
  - Plasma cell myeloma [Not Recovered/Not Resolved]
  - Plasmacytoma [Not Recovered/Not Resolved]

NARRATIVE: CASE EVENT DATE: 20250501
